FAERS Safety Report 26124688 (Version 1)
Quarter: 2025Q4

REPORT INFORMATION
  Report Type: Spontaneous
  Country: EU (occurrence: EU)
  Receive Date: 20251205
  Receipt Date: 20251205
  Transmission Date: 20260118
  Serious: Yes (Life-Threatening, Hospitalization)
  Sender: TEVA
  Company Number: None

PATIENT
  Age: 58 Year
  Sex: Female

DRUGS (3)
  1. FLUOXETINE [Suspect]
     Active Substance: FLUOXETINE HYDROCHLORIDE
     Indication: Suicide attempt
     Dosage: TIME INTERVAL: TOTAL: FLUOXETINE (2331A)
     Route: 048
     Dates: start: 20250826, end: 20250826
  2. CARBAMAZEPINE [Suspect]
     Active Substance: CARBAMAZEPINE
     Indication: Suicide attempt
     Dosage: TIME INTERVAL: TOTAL: CARBAMAZEPINE (561A)
     Route: 048
     Dates: start: 20250826, end: 20250826
  3. ARIPIPRAZOLE [Suspect]
     Active Substance: ARIPIPRAZOLE
     Indication: Suicide attempt
     Dosage: TIME INTERVAL: TOTAL: ARIPIPRAZOLE (2933A)
     Route: 048
     Dates: start: 20250826, end: 20250826

REACTIONS (5)
  - Coma [Recovered/Resolved]
  - Urinary retention [Recovered/Resolved]
  - Bradycardia [Recovered/Resolved]
  - Electrocardiogram QT prolonged [Recovered/Resolved]
  - Blood creatine phosphokinase increased [Recovered/Resolved]

NARRATIVE: CASE EVENT DATE: 20250826
